FAERS Safety Report 7023318-5 (Version None)
Quarter: 2010Q3

REPORT INFORMATION
  Report Type: 
  Country: None (occurrence: None)
  Receive Date: 20100930
  Receipt Date: 20100816
  Transmission Date: 20110219
  Serious: Yes (Death, Other)
  Sender: FDA-Public Use
  Company Number: US-BAXTER-2008BH006580

PATIENT
  Age: 58 Year
  Sex: Female
  Weight: 63 kg

DRUGS (15)
  1. HEPARIN SODIUM INJECTION [Suspect]
     Indication: PULMONARY EMBOLISM
     Route: 040
     Dates: start: 20071103, end: 20071103
  2. HEPARIN SODIUM INJECTION [Suspect]
     Indication: DEEP VEIN THROMBOSIS
     Route: 040
     Dates: start: 20071103, end: 20071103
  3. HEPARIN SODIUM 5,000 UNITS IN DEXTROSE 5% [Suspect]
     Indication: PULMONARY EMBOLISM
     Route: 041
     Dates: start: 20071103, end: 20071104
  4. SUCCINYLDICHOLINE CHLORIDE [Concomitant]
     Indication: ENDOTRACHEAL INTUBATION
     Route: 042
     Dates: start: 20071103, end: 20071103
  5. DOPAMINE [Concomitant]
     Indication: HYPOTENSION
     Route: 042
     Dates: start: 20071103, end: 20071104
  6. PROPOFOL [Concomitant]
     Indication: SEDATION
     Route: 042
     Dates: start: 20071103, end: 20071104
  7. MORPHINE [Concomitant]
     Indication: SEDATION
     Route: 042
     Dates: start: 20071103, end: 20071104
  8. NEO-SYNEPHRINOL [Concomitant]
     Indication: HYPOTENSION
     Route: 042
     Dates: start: 20071103, end: 20071104
  9. LEVOPHED [Concomitant]
     Indication: HYPOTENSION
     Route: 042
     Dates: start: 20071104, end: 20071104
  10. HYDROCHLOROTHIAZIDE [Concomitant]
     Indication: PRODUCT USED FOR UNKNOWN INDICATION
     Route: 065
  11. PROZAC [Concomitant]
     Indication: PRODUCT USED FOR UNKNOWN INDICATION
     Route: 065
  12. WELLBUTRIN [Concomitant]
     Indication: PRODUCT USED FOR UNKNOWN INDICATION
     Route: 065
  13. ASPIRIN [Concomitant]
     Indication: PRODUCT USED FOR UNKNOWN INDICATION
     Route: 065
  14. IBUPROFEN [Concomitant]
     Indication: PRODUCT USED FOR UNKNOWN INDICATION
     Route: 065
  15. TYLENOL [Concomitant]
     Indication: PRODUCT USED FOR UNKNOWN INDICATION
     Route: 065

REACTIONS (14)
  - ANURIA [None]
  - CARDIO-RESPIRATORY DISTRESS [None]
  - CARDIOGENIC SHOCK [None]
  - FACE OEDEMA [None]
  - HYPOTENSION [None]
  - HYPOTHERMIA [None]
  - INJECTION SITE HAEMORRHAGE [None]
  - LOSS OF CONSCIOUSNESS [None]
  - LUNG NEOPLASM MALIGNANT [None]
  - METABOLIC ACIDOSIS [None]
  - PULMONARY EMBOLISM [None]
  - RESPIRATORY FAILURE [None]
  - SCLERAL OEDEMA [None]
  - UNRESPONSIVE TO STIMULI [None]
